FAERS Safety Report 22285913 (Version 1)
Quarter: 2023Q2

REPORT INFORMATION
  Report Type: Spontaneous
  Country: US (occurrence: US)
  Receive Date: 20230505
  Receipt Date: 20230505
  Transmission Date: 20230722
  Serious: Yes (Other)
  Sender: FDA-Public Use
  Company Number: US-BRISTOL-MYERS SQUIBB COMPANY-2023-062094

PATIENT
  Age: 72 Year
  Sex: Female
  Weight: 73.44 kg

DRUGS (1)
  1. LENALIDOMIDE [Suspect]
     Active Substance: LENALIDOMIDE
     Indication: Plasma cell myeloma
     Dosage: TAKE 1 CAPSULE BY MOUTH DAILY. TAKE FOR 7 DAYS ON THEN 7 DAYS OFF. REPEAT.
     Route: 048
     Dates: start: 20210726, end: 20230328

REACTIONS (2)
  - Colon cancer [Recovered/Resolved]
  - Off label use [Unknown]
